FAERS Safety Report 8455703-9 (Version None)
Quarter: 2012Q2

REPORT INFORMATION
  Report Type: 
  Country: None (occurrence: None)
  Receive Date: 20120614
  Receipt Date: 20120606
  Transmission Date: 20120825
  Serious: Yes (Other)
  Sender: FDA-Public Use
  Company Number: CIP-2012-00168

PATIENT

DRUGS (3)
  1. BEVACIZUMAB (BEVACIZUMAB) [Suspect]
     Indication: GLIOBLASTOMA
     Dosage: 10 MG/KG (EVERY 14 DAYS), INTRAVENOUS
     Route: 042
  2. IRINOTECAN HCL [Suspect]
     Indication: GLIOBLASTOMA
     Dosage: 340 MG/M2 OR 125 MG/M2 (DAYS 1 AND 14)
  3. CARBOPLATIN [Suspect]
     Indication: GLIOBLASTOMA
     Dosage: AREA UNDER THE PLASMA CURVE AUC 4 MG/ML-MIN (DAY 1 OF EACH 28 DAY CYCLE)

REACTIONS (1)
  - MICROANGIOPATHIC HAEMOLYTIC ANAEMIA [None]
